FAERS Safety Report 10142257 (Version 1)
Quarter: 2014Q2

REPORT INFORMATION
  Report Type: Spontaneous
  Country: US (occurrence: US)
  Receive Date: 20140430
  Receipt Date: 20140430
  Transmission Date: 20141212
  Serious: No
  Sender: FDA-Public Use
  Company Number: US-009507513-1404USA014524

PATIENT
  Age: 70 Year
  Sex: Female

DRUGS (3)
  1. DULERA [Suspect]
     Indication: ASTHMA
     Dosage: 200/5 MCG/TWO PUFFS TWICW DAILY
     Route: 055
     Dates: start: 201401
  2. SINGULAIR [Concomitant]
  3. CELEBREX [Concomitant]

REACTIONS (4)
  - Candida infection [Not Recovered/Not Resolved]
  - Dyspnoea [Not Recovered/Not Resolved]
  - Drug dose omission [Unknown]
  - Product quality issue [Unknown]
